FAERS Safety Report 8481494-1 (Version None)
Quarter: 2012Q3

REPORT INFORMATION
  Report Type: 
  Country: None (occurrence: None)
  Receive Date: 20120702
  Receipt Date: 20120619
  Transmission Date: 20120928
  Serious: Yes (Other)
  Sender: FDA-Public Use
  Company Number: JP-VERTEX PHARMACEUTICALS INC.-AE-2012-009260

PATIENT
  Age: 52 Year
  Sex: Male

DRUGS (9)
  1. GLYCYRON [Concomitant]
     Dates: end: 20120430
  2. EPINASTINE HYDROCHLORIDE [Concomitant]
     Route: 048
  3. TELAVIC (TELAPREVIR) [Suspect]
     Route: 048
     Dates: start: 20120529, end: 20120619
  4. RIBAVIRIN [Concomitant]
     Indication: HEPATITIS C
     Route: 048
     Dates: start: 20120417, end: 20120521
  5. URSO 250 [Concomitant]
     Route: 048
     Dates: end: 20120430
  6. RIBAVIRIN [Concomitant]
     Route: 048
     Dates: start: 20120522
  7. PEG-INTRON [Concomitant]
     Indication: HEPATITIS C
     Route: 058
     Dates: start: 20120417
  8. ADALAT CC [Concomitant]
     Route: 048
  9. TELAVIC (TELAPREVIR) [Suspect]
     Indication: HEPATITIS C
     Route: 048
     Dates: start: 20120417, end: 20120528

REACTIONS (5)
  - BLOOD CREATININE INCREASED [None]
  - HYPERURICAEMIA [None]
  - DECREASED APPETITE [None]
  - DRUG ERUPTION [None]
  - ANAEMIA [None]
